FAERS Safety Report 9479271 (Version 1)
Quarter: 2013Q3

REPORT INFORMATION
  Report Type: Spontaneous
  Country: US (occurrence: US)
  Receive Date: 20130827
  Receipt Date: 20130827
  Transmission Date: 20140515
  Serious: Yes (Other)
  Sender: FDA-Public Use
  Company Number: US-PFIZER INC-2013242963

PATIENT
  Sex: Female

DRUGS (1)
  1. AZITHROMYCIN [Suspect]
     Dosage: 2 TABLETS OF 250MG TABLETS LAST NIGHT
     Dates: start: 20130820

REACTIONS (2)
  - Blood pressure increased [Unknown]
  - Heart rate increased [Unknown]
